FAERS Safety Report 19783770 (Version 1)
Quarter: 2021Q3

REPORT INFORMATION
  Report Type: Spontaneous
  Country: US (occurrence: US)
  Receive Date: 20210902
  Receipt Date: 20210902
  Transmission Date: 20211014
  Serious: Yes (Life-Threatening)
  Sender: FDA-Public Use
  Company Number: None

PATIENT
  Age: 63 Year
  Sex: Male
  Weight: 91 kg

DRUGS (2)
  1. IODINE CONTRAST [Concomitant]
     Active Substance: IODINE
     Dates: start: 20210803, end: 20210803
  2. IODINE CONTRAST [Suspect]
     Active Substance: IODINE
     Indication: X-RAY WITH CONTRAST

REACTIONS (2)
  - Dyspnoea [None]
  - Urticaria [None]

NARRATIVE: CASE EVENT DATE: 20210803
